FAERS Safety Report 12074902 (Version 1)
Quarter: 2016Q1

REPORT INFORMATION
  Report Type: Spontaneous
  Country: FR (occurrence: FR)
  Receive Date: 20160212
  Receipt Date: 20160212
  Transmission Date: 20160526
  Serious: Yes (Other)
  Sender: FDA-Public Use
  Company Number: FR-BAYER-2016-025824

PATIENT
  Age: 71 Year
  Sex: Male

DRUGS (1)
  1. ACETYLSALICYLIC ACID({=100 MG) [Suspect]
     Active Substance: ASPIRIN
     Dosage: UNK
     Dates: start: 2013

REACTIONS (3)
  - Gastrointestinal ulcer [None]
  - Melaena [None]
  - Gastrointestinal stromal tumour [Recovering/Resolving]

NARRATIVE: CASE EVENT DATE: 201307
